FAERS Safety Report 12066332 (Version 1)
Quarter: 2016Q1

REPORT INFORMATION
  Report Type: Spontaneous
  Country: US (occurrence: US)
  Receive Date: 20160211
  Receipt Date: 20160211
  Transmission Date: 20160526
  Serious: No
  Sender: FDA-Public Use
  Company Number: US-TARO-2015TAR01119

PATIENT
  Sex: Male

DRUGS (1)
  1. LEVOCETIRIZINE DIHYDROCHLORIDE ORAL SOLUTION 2.5 MG/5 ML [Suspect]
     Active Substance: LEVOCETIRIZINE DIHYDROCHLORIDE

REACTIONS (2)
  - Product substitution issue [Not Recovered/Not Resolved]
  - Vomiting [Unknown]
